FAERS Safety Report 9350263 (Version 1)
Quarter: 2013Q2

REPORT INFORMATION
  Report Type: Spontaneous
  Country: US (occurrence: US)
  Receive Date: 20130617
  Receipt Date: 20130617
  Transmission Date: 20140414
  Serious: No
  Sender: FDA-Public Use
  Company Number: US-ASTRAZENECA-2013SE40667

PATIENT
  Age: 68 Year
  Sex: Female

DRUGS (8)
  1. NEXIUM [Suspect]
     Indication: GASTROOESOPHAGEAL REFLUX DISEASE
     Route: 048
  2. OMEPRAZOLE [Suspect]
     Indication: GASTROOESOPHAGEAL REFLUX DISEASE
     Route: 048
  3. OMEPRAZOLE [Suspect]
     Indication: GASTROOESOPHAGEAL REFLUX DISEASE
     Route: 048
  4. ZESTORETIC [Suspect]
     Indication: BLOOD PRESSURE ABNORMAL
     Dosage: 20MG-12.5 MG DAILY
     Route: 048
  5. ZESTORETIC [Suspect]
     Indication: BLOOD PRESSURE ABNORMAL
     Dosage: 20MG-12.5 MG DAILY GENERIC
     Route: 048
  6. SIMVASTATIN [Concomitant]
     Indication: BLOOD CHOLESTEROL
     Route: 048
     Dates: start: 1994
  7. DILTIAZEM [Concomitant]
     Indication: ANGIOPATHY
     Route: 048
     Dates: start: 1994
  8. PLAVIX [Concomitant]
     Indication: STENT PLACEMENT
     Route: 048
     Dates: start: 201305, end: 20130529

REACTIONS (8)
  - Sinusitis [Unknown]
  - Pharyngeal injury [Unknown]
  - Gastrooesophageal reflux disease [Unknown]
  - Weight decreased [Not Recovered/Not Resolved]
  - Nausea [Recovered/Resolved]
  - Vomiting [Recovered/Resolved]
  - Off label use [Recovered/Resolved]
  - Intentional drug misuse [Unknown]
